FAERS Safety Report 8824348 (Version 2)
Quarter: 2012Q4

REPORT INFORMATION
  Report Type: 
  Country: US (occurrence: US)
  Receive Date: 20121004
  Receipt Date: 20121016
  Transmission Date: 20130627
  Serious: Yes (Hospitalization)
  Sender: FDA-Public Use
  Company Number: US-009507513-1210USA002251

PATIENT
  Age: 64 Year
  Sex: Male
  Weight: 80.45 kg

DRUGS (4)
  1. HEXADROL TABLETS [Suspect]
     Indication: MULTIPLE MYELOMA
     Dosage: 40 mg, on days 1, 8, 15
     Route: 048
  2. ZOLINZA [Suspect]
     Indication: MYCOSIS FUNGOIDES
     Dosage: 300 mg, on days 1-7 and 15-21
  3. CARFILZOMIB [Suspect]
     Indication: MULTIPLE MYELOMA
     Dosage: 20 mg/m2, on days 1, 2, 8, 9, 15, 16
  4. LENALIDOMIDE [Suspect]
     Dosage: 15 mg, on days 1-21
     Route: 048

REACTIONS (1)
  - Appendicitis [Unknown]
